FAERS Safety Report 9436219 (Version 1)
Quarter: 2013Q3

REPORT INFORMATION
  Report Type: Report from Study
  Country: US (occurrence: US)
  Receive Date: 20130801
  Receipt Date: 20130801
  Transmission Date: 20140515
  Serious: No
  Sender: FDA-Public Use
  Company Number: US-009507513-1210USA000954

PATIENT
  Age: 26 Year
  Sex: Female

DRUGS (4)
  1. ISENTRESS [Suspect]
     Dosage: 800 MG, QD
     Route: 048
  2. TRUVADA [Suspect]
     Dosage: 1 DF, QD
     Route: 048
  3. NORVIR [Suspect]
     Dosage: 100 MG, QD
     Route: 048
  4. PREZISTA [Suspect]
     Dosage: 600 MG, QD
     Route: 048

REACTIONS (1)
  - Exposure during pregnancy [Recovered/Resolved]
